FAERS Safety Report 20326550 (Version 3)
Quarter: 2022Q2

REPORT INFORMATION
  Report Type: Report from Study
  Country: MX (occurrence: MX)
  Receive Date: 20220112
  Receipt Date: 20220504
  Transmission Date: 20220721
  Serious: Yes (Other)
  Sender: FDA-Public Use
  Company Number: MX-NOVARTISPH-NVSC2021MX038831

PATIENT
  Age: 62 Year
  Sex: Female
  Weight: 48 kg

DRUGS (6)
  1. AFINITOR [Suspect]
     Active Substance: EVEROLIMUS
     Indication: Colon cancer
     Dosage: 1 MG, QD
     Route: 048
     Dates: start: 201802
  2. AFINITOR [Suspect]
     Active Substance: EVEROLIMUS
     Indication: Endometrial adenocarcinoma
     Dosage: 10 MG, QD
     Route: 048
  3. AFINITOR [Suspect]
     Active Substance: EVEROLIMUS
     Indication: Uterine cancer
     Dosage: 1 (5 MG, QD) (5 YEARS AGO (DID NOT KNOW EXACT DATE))
     Route: 048
     Dates: end: 202101
  4. FEMARA [Suspect]
     Active Substance: LETROZOLE
     Indication: Endometrial adenocarcinoma
     Dosage: 1 MG, QD
     Route: 048
     Dates: start: 201802
  5. FEMARA [Suspect]
     Active Substance: LETROZOLE
     Indication: Colon cancer
     Dosage: 1 (2.5 MG), QD (5 YEARS AGO (DID NOT KNOW EXACT DATE))
     Route: 048
     Dates: end: 202101
  6. FEMARA [Suspect]
     Active Substance: LETROZOLE
     Indication: Uterine cancer

REACTIONS (15)
  - Diarrhoea haemorrhagic [Not Recovered/Not Resolved]
  - Inflammation [Unknown]
  - Abdominal pain [Unknown]
  - Feeding disorder [Not Recovered/Not Resolved]
  - Abdominal discomfort [Not Recovered/Not Resolved]
  - Pain [Not Recovered/Not Resolved]
  - Malaise [Unknown]
  - Nail discolouration [Not Recovered/Not Resolved]
  - Burning sensation [Unknown]
  - Acne [Unknown]
  - Generalised oedema [Unknown]
  - Skin exfoliation [Unknown]
  - Nausea [Not Recovered/Not Resolved]
  - Product use in unapproved indication [Unknown]
  - Wrong technique in product usage process [Unknown]

NARRATIVE: CASE EVENT DATE: 20210116
